FAERS Safety Report 4699721-5 (Version None)
Quarter: 2005Q2

REPORT INFORMATION
  Report Type: 
  Country: None (occurrence: None)
  Receive Date: 20050623
  Receipt Date: 20050608
  Transmission Date: 20051028
  Serious: Yes (Hospitalization)
  Sender: FDA-Public Use
  Company Number: DSA_26172_2005

PATIENT
  Age: 83 Year
  Sex: Female

DRUGS (3)
  1. DILTIAZEM HYDROCHLORIDE [Suspect]
     Dosage: DF PO
     Route: 048
     Dates: start: 20041203, end: 20041211
  2. LESCOL [Suspect]
     Dosage: DF PO
     Route: 048
     Dates: start: 20041203, end: 20041211
  3. LOZOL [Suspect]
     Dosage: DF PO
     Route: 048
     Dates: start: 20041203, end: 20041211

REACTIONS (8)
  - FACE OEDEMA [None]
  - LOCALISED OEDEMA [None]
  - PURPURA [None]
  - PYREXIA [None]
  - RASH MACULO-PAPULAR [None]
  - RENAL IMPAIRMENT [None]
  - RHABDOMYOLYSIS [None]
  - TOXIC SKIN ERUPTION [None]
